FAERS Safety Report 9839252 (Version 1)
Quarter: 2014Q1

REPORT INFORMATION
  Report Type: Report from Study
  Country: US (occurrence: US)
  Receive Date: 20140123
  Receipt Date: 20140123
  Transmission Date: 20141002
  Serious: Yes (Hospitalization)
  Sender: FDA-Public Use
  Company Number: US-ABBVIE-14P-163-1189354-00

PATIENT
  Age: 71 Year
  Sex: Male
  Weight: 59.02 kg

DRUGS (12)
  1. HUMIRA [Suspect]
     Indication: ANKYLOSING SPONDYLITIS
     Route: 058
     Dates: start: 2012
  2. DULOXETINE [Concomitant]
     Indication: DEPRESSION
  3. LEVSIN [Concomitant]
     Indication: NAUSEA
  4. ROBAXIN [Concomitant]
     Indication: MUSCLE SPASMS
  5. ROBAXIN [Concomitant]
     Indication: ANKYLOSING SPONDYLITIS
  6. TOPROL [Concomitant]
     Indication: HYPERTENSION
  7. MORPHINE [Concomitant]
     Indication: PAIN
  8. MORPHINE [Concomitant]
     Indication: ANKYLOSING SPONDYLITIS
  9. OXYCODONE [Concomitant]
     Indication: PAIN
  10. OXYCODONE [Concomitant]
     Indication: ANKYLOSING SPONDYLITIS
  11. XANAX [Concomitant]
     Indication: ANXIETY
  12. AMBIEN [Concomitant]
     Indication: INSOMNIA

REACTIONS (9)
  - Loss of consciousness [Recovered/Resolved]
  - Diplopia [Not Recovered/Not Resolved]
  - Facial bones fracture [Not Recovered/Not Resolved]
  - Dizziness [Not Recovered/Not Resolved]
  - Fall [Recovered/Resolved]
  - Facial pain [Recovering/Resolving]
  - Musculoskeletal pain [Recovering/Resolving]
  - Laceration [Recovering/Resolving]
  - Contusion [Recovering/Resolving]
